FAERS Safety Report 18504071 (Version 1)
Quarter: 2020Q4

REPORT INFORMATION
  Report Type: Report from Study
  Country: US (occurrence: US)
  Receive Date: 20201113
  Receipt Date: 20201113
  Transmission Date: 20210114
  Serious: Yes (Other)
  Sender: FDA-Public Use
  Company Number: US-TAKEDA-US202017164

PATIENT
  Age: 8 Year
  Sex: Male

DRUGS (6)
  1. NAPROXIN [NAPROXEN] [Concomitant]
     Indication: PRODUCT USED FOR UNKNOWN INDICATION
  2. TYLENOL [Concomitant]
     Active Substance: ACETAMINOPHEN
  3. ELAPRASE [Suspect]
     Active Substance: IDURSULFASE
     Dosage: 12 MILLIGRAM, 1X/WEEK
     Route: 042
     Dates: start: 20200714
  4. BENADRYL [Concomitant]
     Active Substance: DIPHENHYDRAMINE HYDROCHLORIDE
     Indication: PRODUCT USED FOR UNKNOWN INDICATION
  5. ELAPRASE [Suspect]
     Active Substance: IDURSULFASE
     Dosage: 12 MILLIGRAM, 1X/WEEK
     Route: 042
     Dates: start: 20200508
  6. ELAPRASE [Suspect]
     Active Substance: IDURSULFASE
     Indication: MUCOPOLYSACCHARIDOSIS II
     Dosage: UNK, 1X/WEEK
     Route: 042
     Dates: start: 20170825

REACTIONS (6)
  - Hypertension [Recovered/Resolved]
  - Pyrexia [Not Recovered/Not Resolved]
  - Product dose omission issue [Recovered/Resolved]
  - Nasopharyngitis [Unknown]
  - Restlessness [Unknown]
  - Infusion related reaction [Unknown]

NARRATIVE: CASE EVENT DATE: 20200520
